FAERS Safety Report 5132499-X (Version None)
Quarter: 2006Q4

REPORT INFORMATION
  Report Type: 
  Country: None (occurrence: None)
  Receive Date: 20061019
  Receipt Date: 20061019
  Transmission Date: 20070319
  Serious: Yes (Hospitalization, Disabling)
  Sender: FDA-Public Use
  Company Number: None

PATIENT
  Age: 77 Year
  Sex: Female
  Weight: 77.5651 kg

DRUGS (2)
  1. NESIRITIDE 0.01MCG [Suspect]
     Indication: CARDIAC FAILURE CONGESTIVE
     Dosage: 0.01 MCG/KG/MIN   CONTINUOUS   IV DRIP
     Route: 041
     Dates: start: 20061004, end: 20061005
  2. NESIRITIDE 0.01MCG [Suspect]
     Indication: CONDITION AGGRAVATED
     Dosage: 0.01 MCG/KG/MIN   CONTINUOUS   IV DRIP
     Route: 041
     Dates: start: 20061004, end: 20061005

REACTIONS (1)
  - RENAL FAILURE ACUTE [None]
